FAERS Safety Report 5745340-9 (Version None)
Quarter: 2008Q2

REPORT INFORMATION
  Report Type: 
  Country: None (occurrence: None)
  Receive Date: 20080521
  Receipt Date: 20080512
  Transmission Date: 20081010
  Serious: Yes (Hospitalization, Disabling, Other)
  Sender: FDA-Public Use
  Company Number: US-MERCK-0705USA01551

PATIENT
  Age: 64 Year
  Sex: Female

DRUGS (2)
  1. FOSAMAX [Suspect]
     Indication: OSTEOPOROSIS
     Route: 048
     Dates: start: 19980101, end: 20070101
  2. FOSAMAX PLUS D [Suspect]
     Route: 048

REACTIONS (25)
  - ADVERSE EVENT [None]
  - AGGRESSION [None]
  - ANGIOPATHY [None]
  - ASTHMA [None]
  - DEPRESSION [None]
  - DIARRHOEA [None]
  - DIZZINESS [None]
  - FALL [None]
  - GASTROOESOPHAGEAL REFLUX DISEASE [None]
  - HEADACHE [None]
  - IMMUNE SYSTEM DISORDER [None]
  - INCONTINENCE [None]
  - INFECTION [None]
  - LUNG DISORDER [None]
  - MALAISE [None]
  - ORAL HERPES [None]
  - PANCYTOPENIA [None]
  - PLATELET COUNT DECREASED [None]
  - PNEUMONIA [None]
  - RESORPTION BONE INCREASED [None]
  - SUICIDAL IDEATION [None]
  - THROMBOSIS [None]
  - TOOTH DISORDER [None]
  - TOOTH FRACTURE [None]
  - WEIGHT DECREASED [None]
